FAERS Safety Report 25968071 (Version 2)
Quarter: 2025Q4

REPORT INFORMATION
  Report Type: Spontaneous
  Country: JP (occurrence: JP)
  Receive Date: 20251028
  Receipt Date: 20251201
  Transmission Date: 20260117
  Serious: Yes (Hospitalization)
  Sender: NOVARTIS
  Company Number: JP-002147023-NVSJ2025JP010329

PATIENT
  Age: 7 Decade
  Sex: Female

DRUGS (2)
  1. LUTATHERA [Suspect]
     Active Substance: LUTETIUM OXODOTREOTIDE LU-177
     Indication: Neuroendocrine tumour
     Dosage: 7.4 GBQ, EVERY 8 WEEKS
     Route: 041
     Dates: start: 20250918, end: 20250918
  2. LANREOTIDE ACETATE [Suspect]
     Active Substance: LANREOTIDE ACETATE
     Indication: Neuroendocrine tumour
     Dosage: UNK
     Route: 058

REACTIONS (1)
  - Intestinal perforation [Recovering/Resolving]

NARRATIVE: CASE EVENT DATE: 20251017
